FAERS Safety Report 18392607 (Version 3)
Quarter: 2020Q4

REPORT INFORMATION
  Report Type: Report from Study
  Country: US (occurrence: US)
  Receive Date: 20201016
  Receipt Date: 20201111
  Transmission Date: 20210114
  Serious: Yes (Hospitalization, Other)
  Sender: FDA-Public Use
  Company Number: US-GLAXOSMITHKLINE-US2019TSO235123

PATIENT
  Age: 59 Year
  Sex: Female

DRUGS (13)
  1. NIRAPARIB [Suspect]
     Active Substance: NIRAPARIB
     Dosage: UNK
     Route: 065
  2. VITAMIN A [Concomitant]
     Active Substance: VITAMIN A
     Indication: PRODUCT USED FOR UNKNOWN INDICATION
     Dosage: UNK
  3. NIRAPARIB [Suspect]
     Active Substance: NIRAPARIB
     Indication: OVARIAN CANCER
     Dosage: 200 MG, QD
     Route: 065
     Dates: start: 20191213
  4. NIRAPARIB [Suspect]
     Active Substance: NIRAPARIB
     Dosage: 200 MG, QD
     Route: 065
  5. NIRAPARIB [Suspect]
     Active Substance: NIRAPARIB
     Dosage: 200 MG, QD
     Route: 065
  6. NIRAPARIB [Suspect]
     Active Substance: NIRAPARIB
     Dosage: 200 MG, QD
     Route: 065
     Dates: end: 20201001
  7. BUPROPION HCL [Concomitant]
     Active Substance: BUPROPION HYDROCHLORIDE
     Indication: PRODUCT USED FOR UNKNOWN INDICATION
     Dosage: UNK
  8. NIRAPARIB [Suspect]
     Active Substance: NIRAPARIB
     Dosage: 200 MG, QD
     Route: 065
  9. NIRAPARIB [Suspect]
     Active Substance: NIRAPARIB
     Dosage: 200 MG, QD
     Route: 048
  10. LORAZEPAM. [Concomitant]
     Active Substance: LORAZEPAM
     Indication: PRODUCT USED FOR UNKNOWN INDICATION
     Dosage: UNK
  11. ALBUTEROL. [Concomitant]
     Active Substance: ALBUTEROL
     Indication: PRODUCT USED FOR UNKNOWN INDICATION
     Dosage: UNK
  12. NIRAPARIB [Suspect]
     Active Substance: NIRAPARIB
     Indication: MALIGNANT PERITONEAL NEOPLASM
     Dosage: 200 MG, QD
     Route: 048
     Dates: start: 20191214
  13. VITAMIN D3 [Concomitant]
     Active Substance: CHOLECALCIFEROL
     Indication: PRODUCT USED FOR UNKNOWN INDICATION
     Dosage: UNK

REACTIONS (34)
  - Ear pain [Recovered/Resolved]
  - Miliaria [Recovered/Resolved]
  - Flatulence [Unknown]
  - Cough [Unknown]
  - Hypoaesthesia [Unknown]
  - Asthenia [Unknown]
  - Scar [Unknown]
  - Malignant neoplasm progression [Unknown]
  - Vomiting [Unknown]
  - Photosensitivity reaction [Unknown]
  - Gait disturbance [Unknown]
  - Blood glucose increased [Unknown]
  - Underdose [Unknown]
  - Haemoglobin decreased [Recovering/Resolving]
  - Feeling abnormal [Unknown]
  - Nasopharyngitis [Unknown]
  - Cognitive disorder [Unknown]
  - Skin disorder [Unknown]
  - Hernia repair [Unknown]
  - Tremor [Unknown]
  - Product dose omission issue [Unknown]
  - Stomach mass [Unknown]
  - Increased tendency to bruise [Unknown]
  - Diabetes mellitus [Unknown]
  - Bronchitis bacterial [Recovered/Resolved]
  - Pyrexia [Unknown]
  - Hypertension [Not Recovered/Not Resolved]
  - Pain in extremity [Unknown]
  - Rash [Unknown]
  - Flushing [Recovered/Resolved]
  - Abdominal hernia [Unknown]
  - Headache [Recovered/Resolved]
  - Fine motor skill dysfunction [Unknown]
  - Pain [Unknown]

NARRATIVE: CASE EVENT DATE: 201912
